FAERS Safety Report 5514724-6 (Version None)
Quarter: 2007Q4

REPORT INFORMATION
  Report Type: 
  Country: None (occurrence: None)
  Receive Date: 20071113
  Receipt Date: 20071101
  Transmission Date: 20080405
  Serious: Yes (Hospitalization)
  Sender: FDA-Public Use
  Company Number: DK-PFIZER INC-2007092492

PATIENT
  Sex: Female

DRUGS (2)
  1. LYRICA [Suspect]
     Indication: NEURALGIA
     Route: 048
     Dates: start: 20071003, end: 20071010
  2. OXYCONTIN [Interacting]
     Route: 048

REACTIONS (6)
  - CONFUSIONAL STATE [None]
  - DIPLOPIA [None]
  - DRUG INTERACTION [None]
  - FATIGUE [None]
  - MOVEMENT DISORDER [None]
  - SPEECH DISORDER [None]
